FAERS Safety Report 18379804 (Version 3)
Quarter: 2020Q4

REPORT INFORMATION
  Report Type: Spontaneous
  Country: IT (occurrence: IT)
  Receive Date: 20201014
  Receipt Date: 20201120
  Transmission Date: 20210114
  Serious: Yes (Hospitalization)
  Sender: FDA-Public Use
  Company Number: IT-TEVA-2020-IT-1837667

PATIENT
  Age: 79 Year
  Sex: Female

DRUGS (2)
  1. CEFTRIAXONE. [Interacting]
     Active Substance: CEFTRIAXONE
     Dosage: 1 DF
     Route: 042
  2. VENLAFAXINE HYDROCHLORIDE. [Suspect]
     Active Substance: VENLAFAXINE HYDROCHLORIDE
     Indication: MENTAL DISORDER
     Dosage: 75 MG
     Route: 048

REACTIONS (3)
  - Sopor [Recovered/Resolved]
  - Drug level increased [Recovered/Resolved]
  - Drug interaction [Unknown]

NARRATIVE: CASE EVENT DATE: 20200919
